FAERS Safety Report 26082231 (Version 1)
Quarter: 2025Q4

REPORT INFORMATION
  Report Type: Spontaneous
  Country: US (occurrence: US)
  Receive Date: 20251124
  Receipt Date: 20251124
  Transmission Date: 20260117
  Serious: No
  Sender: ALVOGEN
  Company Number: US-ALVOGEN-2025096346

PATIENT
  Sex: Female

DRUGS (1)
  1. TERIPARATIDE [Suspect]
     Active Substance: TERIPARATIDE
     Indication: Product used for unknown indication
     Dosage: EXP. DATE: 30-SEP-2025, 620 MCG/2.48 ML (250 MCG/ML)

REACTIONS (5)
  - Injection site haemorrhage [Unknown]
  - Device delivery system issue [Unknown]
  - Device malfunction [Unknown]
  - Poor quality product administered [Unknown]
  - Product contamination with body fluid [Unknown]

NARRATIVE: CASE EVENT DATE: 20250213
